FAERS Safety Report 6564552-8 (Version None)
Quarter: 2010Q1

REPORT INFORMATION
  Report Type: 
  Country: None (occurrence: None)
  Receive Date: 20100201
  Receipt Date: 20100119
  Transmission Date: 20100710
  Serious: Yes (Hospitalization, Other)
  Sender: FDA-Public Use
  Company Number: PHEH2010US01231

PATIENT
  Sex: Female
  Weight: 62.585 kg

DRUGS (2)
  1. RECLAST [Suspect]
     Indication: HIP FRACTURE
     Dosage: 5 MG IV ONCE YEARLY
     Dates: start: 20091228
  2. LIPITOR [Concomitant]

REACTIONS (4)
  - ARTHRALGIA [None]
  - FALL [None]
  - HIP FRACTURE [None]
  - JOINT INJURY [None]
